FAERS Safety Report 4767590-0 (Version None)
Quarter: 2005Q3

REPORT INFORMATION
  Report Type: 
  Country: None (occurrence: None)
  Receive Date: 20050913
  Receipt Date: 20050830
  Transmission Date: 20060218
  Serious: Yes (Death, Hospitalization)
  Sender: FDA-Public Use
  Company Number: US-AMGEN-US148529

PATIENT
  Sex: Female

DRUGS (3)
  1. EPOETIN ALFA [Suspect]
     Indication: DIALYSIS
     Route: 042
     Dates: start: 20050810, end: 20050825
  2. HEPARIN [Concomitant]
     Route: 058
     Dates: start: 20050824
  3. NITROPASTE [Concomitant]
     Dates: start: 20050824

REACTIONS (7)
  - ACUTE CORONARY SYNDROME [None]
  - DIALYSIS [None]
  - HAEMORRHAGE [None]
  - INFECTION [None]
  - MYOCARDIAL ISCHAEMIA [None]
  - REFUSAL OF TREATMENT BY PATIENT [None]
  - SHOCK HAEMORRHAGIC [None]
